FAERS Safety Report 4846567-0 (Version None)
Quarter: 2005Q4

REPORT INFORMATION
  Report Type: 
  Country: None (occurrence: None)
  Receive Date: 20051128
  Receipt Date: 20050531
  Transmission Date: 20060501
  Serious: Yes (Death)
  Sender: FDA-Public Use
  Company Number: 2005BH000085

PATIENT
  Age: 62 Year
  Sex: Female

DRUGS (1)
  1. IMMUNE GLOBULIN INTRAVENOUS (HUMAN) [Suspect]
     Indication: AMYOTROPHIC LATERAL SCLEROSIS

REACTIONS (3)
  - ARTERIAL THROMBOSIS LIMB [None]
  - PULMONARY EMBOLISM [None]
  - SUDDEN DEATH [None]
